FAERS Safety Report 5516020-X (Version None)
Quarter: 2007Q4

REPORT INFORMATION
  Report Type: 
  Country: None (occurrence: None)
  Receive Date: 20071114
  Receipt Date: 20061115
  Transmission Date: 20080405
  Serious: No
  Sender: FDA-Public Use
  Company Number: A0627456A

PATIENT
  Age: 29 Year
  Sex: Male

DRUGS (1)
  1. COMMIT [Suspect]
     Dates: start: 20061112, end: 20061112

REACTIONS (1)
  - FEELING ABNORMAL [None]
